FAERS Safety Report 5679421-5 (Version None)
Quarter: 2008Q1

REPORT INFORMATION
  Report Type: 
  Country: None (occurrence: None)
  Receive Date: 20080321
  Receipt Date: 20080317
  Transmission Date: 20080703
  Serious: Yes (Death, Hospitalization)
  Sender: FDA-Public Use
  Company Number: 2008-00926

PATIENT
  Age: 73 Year
  Sex: Male

DRUGS (3)
  1. VELCADE [Suspect]
     Indication: MULTIPLE MYELOMA
     Dosage: 1.00 MG/M2, INTRAVENOUS
     Route: 042
     Dates: start: 20071026, end: 20080314
  2. DOXORUBICIN HCL [Suspect]
     Indication: MULTIPLE MYELOMA
     Dosage: 9.00 MG/M2, INTRAVENOUS
     Route: 042
     Dates: start: 20071026, end: 20080314
  3. DEXAMETHASONE TAB [Suspect]
     Indication: MULTIPLE MYELOMA
     Dosage: 40.00 MG, INTRAVENOUS
     Route: 042
     Dates: start: 20071026, end: 20080314

REACTIONS (7)
  - CARDIOPULMONARY FAILURE [None]
  - ERYSIPELAS [None]
  - GENERAL PHYSICAL HEALTH DETERIORATION [None]
  - HYPERTONIA [None]
  - PYREXIA [None]
  - RENAL DISORDER [None]
  - RENAL FAILURE ACUTE [None]
